FAERS Safety Report 6187902-3 (Version None)
Quarter: 2009Q2

REPORT INFORMATION
  Report Type: 
  Country: None (occurrence: None)
  Receive Date: 20090513
  Receipt Date: 20090507
  Transmission Date: 20091009
  Serious: Yes (Other)
  Sender: FDA-Public Use
  Company Number: US-ALLERGAN-0906402US

PATIENT
  Age: 69 Year
  Sex: Female

DRUGS (2)
  1. SANCTURA XR [Suspect]
     Indication: URINARY HESITATION
     Dosage: 60 MG, QAM
     Route: 048
     Dates: start: 20090505, end: 20090506
  2. LISINOPRIL [Concomitant]
     Indication: HYPERTENSION

REACTIONS (4)
  - BLADDER DISORDER [None]
  - BLADDER PAIN [None]
  - DRUG INEFFECTIVE [None]
  - MICTURITION URGENCY [None]
